APPROVED DRUG PRODUCT: RAMELTEON
Active Ingredient: RAMELTEON
Strength: 8MG
Dosage Form/Route: TABLET;ORAL
Application: A216209 | Product #001 | TE Code: BX
Applicant: XIROMED PHARMA ESPANA SL
Approved: Nov 25, 2022 | RLD: No | RS: No | Type: RX